FAERS Safety Report 4869609-5 (Version None)
Quarter: 2005Q4

REPORT INFORMATION
  Report Type: 
  Country: None (occurrence: None)
  Receive Date: 20051227
  Receipt Date: 20050512
  Transmission Date: 20060501
  Serious: Yes (Death)
  Sender: FDA-Public Use
  Company Number: CHF-20050195

PATIENT
  Age: 1 Day
  Sex: Male

DRUGS (3)
  1. -NATURAL PULMONARY SURFACTANT - STERILE SUSPENSION -CUROSURF 120 MG/1, [Suspect]
     Indication: RESPIRATORY DISTRESS
     Route: 037
  2. VALIUM [Concomitant]
  3. DIAZEPAM [Concomitant]

REACTIONS (11)
  - BLOOD LACTIC ACID DECREASED [None]
  - C-REACTIVE PROTEIN INCREASED [None]
  - GENERAL PHYSICAL HEALTH DETERIORATION [None]
  - HEART RATE INCREASED [None]
  - HYPOTONIA NEONATAL [None]
  - INTERSTITIAL LUNG DISEASE [None]
  - JAUNDICE NEONATAL [None]
  - LEUKOPENIA NEONATAL [None]
  - NEONATAL DISORDER [None]
  - NEUTROPHIL COUNT DECREASED [None]
  - PNEUMOCOCCAL INFECTION [None]
